FAERS Safety Report 14327745 (Version 7)
Quarter: 2018Q1

REPORT INFORMATION
  Report Type: Spontaneous
  Country: US (occurrence: US)
  Receive Date: 20171227
  Receipt Date: 20180226
  Transmission Date: 20180509
  Serious: Yes (Hospitalization, Other)
  Sender: FDA-Public Use
  Company Number: US-PFIZER INC-2017547498

PATIENT
  Age: 71 Year
  Sex: Male
  Weight: 47.62 kg

DRUGS (15)
  1. FERROUS SULFATE. [Concomitant]
     Active Substance: FERROUS SULFATE
     Dosage: UNK
  2. SUTENT [Suspect]
     Active Substance: SUNITINIB MALATE
     Indication: METASTATIC RENAL CELL CARCINOMA
     Dosage: 50 MG, CYCLIC (DAILY FOR 2 WEEKS ON/1 WEEK OFF)
     Route: 048
     Dates: start: 20171213, end: 20180115
  3. PREVAGEN [Concomitant]
     Active Substance: DIETARY SUPPLEMENT
     Dosage: UNK
  4. VITAMIN D [Concomitant]
     Active Substance: CHOLECALCIFEROL
     Dosage: UNK
  5. CARISOPRODOL. [Concomitant]
     Active Substance: CARISOPRODOL
     Dosage: UNK
  6. MAGNESIUM [Concomitant]
     Active Substance: MAGNESIUM
     Dosage: UNK
  7. ARICEPT [Concomitant]
     Active Substance: DONEPEZIL HYDROCHLORIDE
     Dosage: UNK
  8. GABAPENTIN. [Concomitant]
     Active Substance: GABAPENTIN
     Dosage: UNK
  9. ASPIRIN. [Concomitant]
     Active Substance: ASPIRIN
     Dosage: UNK
  10. VITAMIN B-COMPLEX [Concomitant]
     Active Substance: DEXPANTHENOL\NIACINAMIDE\PYRIDOXINE HYDROCHLORIDE\RIBOFLAVIN 5^-PHOSPHATE SODIUM\THIAMINE HYDROCHLORIDE
     Dosage: UNK
  11. OMEGA 3 [Concomitant]
     Active Substance: OMEGA-3 FATTY ACIDS
     Dosage: UNK
  12. PRILOSEC [Concomitant]
     Active Substance: OMEPRAZOLE MAGNESIUM
     Dosage: UNK
  13. MYCOPHENOLIC ACID. [Concomitant]
     Active Substance: MYCOPHENOLIC ACID
     Dosage: UNK
  14. VALACYCLOVIR [Concomitant]
     Active Substance: VALACYCLOVIR HYDROCHLORIDE
     Dosage: UNK
  15. ZYRTEC [Concomitant]
     Active Substance: CETIRIZINE HYDROCHLORIDE
     Dosage: UNK

REACTIONS (24)
  - Fatigue [Not Recovered/Not Resolved]
  - Malaise [Unknown]
  - Hypotension [Unknown]
  - Oral pain [Unknown]
  - Asthenia [Unknown]
  - Diarrhoea [Not Recovered/Not Resolved]
  - Condition aggravated [Not Recovered/Not Resolved]
  - Decreased appetite [Unknown]
  - Weight decreased [Unknown]
  - Eating disorder [Not Recovered/Not Resolved]
  - Chest pain [Unknown]
  - Blood creatinine increased [Unknown]
  - Neoplasm progression [Unknown]
  - Heart rate increased [Unknown]
  - Candida infection [Unknown]
  - Dysstasia [Unknown]
  - Feeling cold [Unknown]
  - Pneumonia [Not Recovered/Not Resolved]
  - Food intolerance [Not Recovered/Not Resolved]
  - Pyrexia [Unknown]
  - Delusional perception [Unknown]
  - Dehydration [Unknown]
  - Depression [Unknown]
  - Gait disturbance [Unknown]

NARRATIVE: CASE EVENT DATE: 201712
